FAERS Safety Report 21057074 (Version 1)
Quarter: 2022Q3

REPORT INFORMATION
  Report Type: Spontaneous
  Country: CN (occurrence: None)
  Receive Date: 20220708
  Receipt Date: 20220708
  Transmission Date: 20221027
  Serious: Yes (Hospitalization, Other)
  Sender: FDA-Public Use
  Company Number: 2022A244919

PATIENT
  Age: 30156 Day
  Sex: Female

DRUGS (4)
  1. METOPROLOL SUCCINATE [Suspect]
     Active Substance: METOPROLOL SUCCINATE
     Indication: Hypotension
     Route: 048
     Dates: start: 20190627, end: 20220611
  2. ROSUVASTATIN CALCIUM [Suspect]
     Active Substance: ROSUVASTATIN CALCIUM
     Indication: Lipids decreased
     Route: 048
     Dates: start: 20190627, end: 20220611
  3. ISOSORBIDE MONONITRATE [Suspect]
     Active Substance: ISOSORBIDE MONONITRATE
     Indication: Cardiac disorder
     Route: 048
     Dates: start: 20190627, end: 20220611
  4. XARELTO [Suspect]
     Active Substance: RIVAROXABAN
     Indication: Cardiac disorder
     Route: 048
     Dates: start: 20190627, end: 20220611

REACTIONS (1)
  - Drug-induced liver injury [Recovering/Resolving]

NARRATIVE: CASE EVENT DATE: 20220611
